FAERS Safety Report 23585466 (Version 1)
Quarter: 2024Q1

REPORT INFORMATION
  Report Type: Spontaneous
  Country: US (occurrence: None)
  Receive Date: 20240229
  Receipt Date: 20240229
  Transmission Date: 20240410
  Serious: Yes (Hospitalization)
  Sender: FDA-Public Use
  Company Number: None

PATIENT
  Sex: Male

DRUGS (12)
  1. CREON [Suspect]
     Active Substance: PANCRELIPASE AMYLASE\PANCRELIPASE LIPASE\PANCRELIPASE PROTEASE
     Indication: Cystic fibrosis lung
     Dosage: OTHER STRENGTH : 24000-76000 UNIT;?OTHER FREQUENCY : WITH MEALS;?
     Route: 048
  2. CREON [Suspect]
     Active Substance: PANCRELIPASE AMYLASE\PANCRELIPASE LIPASE\PANCRELIPASE PROTEASE
     Dosage: OTHER STRENGTH : 24000-76000 UNIT;?OTHER FREQUENCY : WITH SNACKS;?
     Route: 048
  3. CREON [Suspect]
     Active Substance: PANCRELIPASE AMYLASE\PANCRELIPASE LIPASE\PANCRELIPASE PROTEASE
     Dosage: OTHER STRENGTH : 24000-76000 UNIT;?OTHER FREQUENCY : WITH BOOST;?
     Route: 048
  4. ALBUTEROL SULFATE [Concomitant]
     Active Substance: ALBUTEROL SULFATE
  5. BETHKIS [Concomitant]
     Active Substance: TOBRAMYCIN
  6. COLISTIMETH [Concomitant]
  7. FLONASE ALGY SPR [Concomitant]
  8. FLUTICASONE INH SALMETER [Concomitant]
  9. LACTULOSE [Concomitant]
     Active Substance: LACTULOSE
  10. LEXAPRO [Concomitant]
     Active Substance: ESCITALOPRAM OXALATE
  11. PROAIR HFA [Concomitant]
     Active Substance: ALBUTEROL SULFATE
  12. PULMOZYME [Concomitant]

REACTIONS (1)
  - Cystic fibrosis [None]
